FAERS Safety Report 11246848 (Version 1)
Quarter: 2015Q3

REPORT INFORMATION
  Report Type: Spontaneous
  Country: None (occurrence: None)
  Receive Date: 20150706
  Receipt Date: 20150706
  Transmission Date: 20151125
  Serious: No
  Sender: FDA-Public Use
  Company Number: None

PATIENT
  Sex: Female
  Weight: 109.32 kg

DRUGS (1)
  1. VALSARTAN/HCT 160/25 [Suspect]
     Active Substance: HYDROCHLOROTHIAZIDE\VALSARTAN
     Indication: HYPERTENSION

REACTIONS (5)
  - Product substitution issue [None]
  - Flushing [None]
  - Drug effect decreased [None]
  - Weight increased [None]
  - Blood pressure inadequately controlled [None]
